FAERS Safety Report 5746799-3 (Version None)
Quarter: 2008Q2

REPORT INFORMATION
  Report Type: 
  Country: None (occurrence: None)
  Receive Date: 20080522
  Receipt Date: 20080512
  Transmission Date: 20081010
  Serious: Yes (Other)
  Sender: FDA-Public Use
  Company Number: FR-PFIZER INC-2008033605

PATIENT
  Sex: Male

DRUGS (3)
  1. TAHOR [Suspect]
     Route: 048
  2. NEXIUM [Suspect]
     Route: 048
     Dates: start: 20070402, end: 20070422
  3. PARIET [Suspect]
     Route: 048
     Dates: start: 20070212, end: 20070401

REACTIONS (3)
  - LEUKOCYTOCLASTIC VASCULITIS [None]
  - SJOGREN'S SYNDROME [None]
  - SYSTEMIC LUPUS ERYTHEMATOSUS [None]
